FAERS Safety Report 24218211 (Version 2)
Quarter: 2024Q3

REPORT INFORMATION
  Report Type: Spontaneous
  Country: US (occurrence: US)
  Receive Date: 20240816
  Receipt Date: 20240821
  Transmission Date: 20241017
  Serious: No
  Sender: PFIZER
  Company Number: US-PFIZER INC-202400236674

PATIENT
  Age: 47 Year
  Sex: Male

DRUGS (1)
  1. CIBINQO [Suspect]
     Active Substance: ABROCITINIB
     Indication: Condition aggravated
     Dosage: 100 MG, 1X/DAY
     Route: 048
     Dates: start: 202408

REACTIONS (3)
  - Dyskinesia [Unknown]
  - Muscle fatigue [Unknown]
  - Pain in jaw [Unknown]

NARRATIVE: CASE EVENT DATE: 20240801
